FAERS Safety Report 9230989 (Version 2)
Quarter: 2013Q2

REPORT INFORMATION
  Report Type: Report from Study
  Country: CA (occurrence: CA)
  Receive Date: 20130415
  Receipt Date: 20130422
  Transmission Date: 20140414
  Serious: Yes (Other)
  Sender: FDA-Public Use
  Company Number: CA-ROCHE-1173983

PATIENT
  Age: 44 Year
  Sex: Female
  Weight: 85 kg

DRUGS (13)
  1. ACTEMRA [Suspect]
     Indication: RHEUMATOID ARTHRITIS
     Route: 042
     Dates: start: 20121121
  2. HYDROXYCHLOROQUINE [Concomitant]
  3. METHOTREXATE [Concomitant]
  4. RELAFEN [Concomitant]
  5. PARIET [Concomitant]
  6. ELAVIL [Concomitant]
  7. TYLENOL #3 (CANADA) [Concomitant]
  8. OXYCODONE [Concomitant]
  9. ACTONEL [Concomitant]
  10. ADVAIR [Concomitant]
  11. VENTOLIN [Concomitant]
  12. VITAMIN B12 [Concomitant]
  13. PREDNISONE [Concomitant]

REACTIONS (10)
  - Basal cell carcinoma [Not Recovered/Not Resolved]
  - Inflammation [Not Recovered/Not Resolved]
  - Pharyngitis [Recovered/Resolved]
  - Nail infection [Recovered/Resolved]
  - Fungal infection [Recovered/Resolved]
  - Oropharyngeal pain [Not Recovered/Not Resolved]
  - Palpitations [Unknown]
  - Weight increased [Unknown]
  - Basal cell carcinoma [Recovering/Resolving]
  - Blood cholesterol increased [Unknown]
